FAERS Safety Report 4724807-6 (Version None)
Quarter: 2005Q3

REPORT INFORMATION
  Report Type: 
  Country: None (occurrence: None)
  Receive Date: 20050726
  Receipt Date: 20040511
  Transmission Date: 20060218
  Serious: Yes (Hospitalization)
  Sender: FDA-Public Use
  Company Number: AT-ROCHE-367191

PATIENT
  Age: 62 Year
  Sex: Female
  Weight: 57 kg

DRUGS (10)
  1. DACLIZUMAB [Suspect]
     Route: 042
     Dates: start: 20040106, end: 20040106
  2. DACLIZUMAB [Suspect]
     Route: 042
     Dates: start: 20040121, end: 20040301
  3. MYCOPHENOLATE MOFETIL [Suspect]
     Route: 048
     Dates: start: 20040106, end: 20040407
  4. MYCOPHENOLATE MOFETIL [Suspect]
     Route: 048
     Dates: start: 20041115
  5. TACROLIMUS [Suspect]
     Route: 048
     Dates: start: 20040415
  6. PREDNISOLONE [Suspect]
     Route: 048
     Dates: start: 20040415
  7. FUROSEMIDE [Concomitant]
     Route: 048
     Dates: start: 20040415
  8. PANTOPRAZOLE SODIUM [Concomitant]
     Route: 048
     Dates: start: 20040106
  9. LASILACTONE [Concomitant]
     Route: 048
     Dates: start: 20041115
  10. LOVENOX [Concomitant]
     Route: 058
     Dates: start: 20041115, end: 20041124

REACTIONS (2)
  - INCISIONAL HERNIA [None]
  - LEUKOPENIA [None]
